FAERS Safety Report 4897518-4 (Version None)
Quarter: 2005Q4

REPORT INFORMATION
  Report Type: 
  Country: None (occurrence: None)
  Receive Date: 20051223
  Receipt Date: 20050914
  Transmission Date: 20060501
  Serious: No
  Sender: FDA-Public Use
  Company Number: 05P-163-0311017-00

PATIENT
  Age: 57 Year
  Sex: Female
  Weight: 109 kg

DRUGS (16)
  1. HUMIRA [Suspect]
     Indication: RHEUMATOID ARTHRITIS
     Dosage: 40 MG, 1 IN 2 WK, SUBCUTANEOUS
     Route: 058
     Dates: start: 20050816
  2. NOVALOG 70/30 [Concomitant]
  3. HYDROXYCHLOROQUINE PHOSPHATE [Concomitant]
  4. SULFASALAZINE [Concomitant]
  5. ISOPHANE INSULIN [Concomitant]
  6. METOPROLOL [Concomitant]
  7. DILTIAZEM HCL [Concomitant]
  8. LISINOPRIL [Concomitant]
  9. IRBESARTAN [Concomitant]
  10. ISOSORBIDE MONONITRATE [Concomitant]
  11. ZOCOR [Concomitant]
  12. FUROSEMIDE [Concomitant]
  13. ASPIRIN [Concomitant]
  14. THEOPHYLLINE [Concomitant]
  15. ASAFEX [Concomitant]
  16. NITROGLYCERIN [Concomitant]

REACTIONS (2)
  - BACK PAIN [None]
  - OEDEMA PERIPHERAL [None]
